FAERS Safety Report 9507709 (Version 1)
Quarter: 2013Q1

REPORT INFORMATION
  Report Type: Spontaneous
  Country: US (occurrence: None)
  Receive Date: 20130305
  Receipt Date: 20130305
  Transmission Date: 20140127
  Serious: Yes (Other)
  Sender: FDA-Public Use
  Company Number: 163-21880-11110843

PATIENT
  Age: 69 Year
  Sex: Female

DRUGS (3)
  1. REVLIMID [Suspect]
     Route: 048
     Dates: start: 20100813
  2. ASPIRIN (ACETYLSALICYLIC ACID) [Concomitant]
  3. ZOMETA (ZOLEDRONIC ACID) [Concomitant]

REACTIONS (6)
  - Muscle spasms [None]
  - Diarrhoea [None]
  - Fatigue [None]
  - White blood cell count decreased [None]
  - Neuropathy peripheral [None]
  - Red blood cell count decreased [None]
